FAERS Safety Report 8883032 (Version 2)
Quarter: 2012Q4

REPORT INFORMATION
  Report Type: 
  Country: FR (occurrence: FR)
  Receive Date: 20121104
  Receipt Date: 20121128
  Transmission Date: 20130627
  Serious: Yes (Hospitalization)
  Sender: FDA-Public Use
  Company Number: FR-JNJFOC-20121014927

PATIENT
  Sex: Male
  Weight: 77 kg

DRUGS (4)
  1. RISPERDAL [Suspect]
     Indication: AGGRESSION
     Route: 048
     Dates: start: 2010, end: 20120914
  2. HALDOL DECANOATE [Suspect]
     Indication: AGGRESSION
     Dosage: 1 ampule and a half
     Route: 030
     Dates: start: 20120725, end: 20120914
  3. HALDOL [Suspect]
     Indication: AGGRESSION
     Route: 048
     Dates: start: 2009, end: 20120725
  4. OGASTORO [Concomitant]
     Indication: GASTROOESOPHAGEAL REFLUX DISEASE
     Route: 048

REACTIONS (2)
  - Hyperprolactinaemia [Recovering/Resolving]
  - Gynaecomastia [Recovering/Resolving]
